FAERS Safety Report 17589849 (Version 1)
Quarter: 2020Q1

REPORT INFORMATION
  Report Type: Spontaneous
  Country: US (occurrence: US)
  Receive Date: 20200325
  Receipt Date: 20200325
  Transmission Date: 20200409
  Serious: Yes (Hospitalization)
  Sender: FDA-Public Use
  Company Number: None

PATIENT
  Age: 72 Year
  Sex: Male
  Weight: 104 kg

DRUGS (2)
  1. GABAPENTIN (GABAPENTIN 400MG CAP) [Suspect]
     Active Substance: GABAPENTIN
     Indication: PAIN
     Route: 048
     Dates: start: 20190713, end: 20200122
  2. BACLOFEN (BACLOFEN 20MG TAB) [Suspect]
     Active Substance: BACLOFEN
     Indication: PAIN
     Route: 048
     Dates: start: 20150720, end: 20200122

REACTIONS (3)
  - Myoclonus [None]
  - Asthenia [None]
  - Sedation [None]

NARRATIVE: CASE EVENT DATE: 20200122
